FAERS Safety Report 6510047-7 (Version None)
Quarter: 2009Q4

REPORT INFORMATION
  Report Type: 
  Country: None (occurrence: None)
  Receive Date: 20091222
  Receipt Date: 20090429
  Transmission Date: 20100525
  Serious: No
  Sender: FDA-Public Use
  Company Number: US-BAUSCH-2009BL002009

PATIENT
  Age: 83 Year
  Sex: Male

DRUGS (4)
  1. TOBRAMYCIN [Suspect]
     Indication: EYE INFECTION
     Route: 047
     Dates: start: 20090408
  2. ZOCOR [Concomitant]
  3. LOPRESOR /UNK/ [Concomitant]
  4. AMITRIPTYLINE ^COX^ [Concomitant]
     Indication: INITIAL INSOMNIA

REACTIONS (1)
  - DRUG INEFFECTIVE [None]
